FAERS Safety Report 8876155 (Version 2)
Quarter: 2014Q1

REPORT INFORMATION
  Report Type: Spontaneous
  Country: US (occurrence: US)
  Receive Date: 20121023
  Receipt Date: 20140115
  Transmission Date: 20141002
  Serious: No
  Sender: FDA-Public Use
  Company Number: US-ASTRAZENECA-2012SE77239

PATIENT
  Age: 54 Year
  Sex: Male

DRUGS (2)
  1. RHINOCORT AQUA [Suspect]
     Route: 045
     Dates: end: 201312
  2. NEXIUM [Suspect]
     Route: 048

REACTIONS (4)
  - Sinusitis [Unknown]
  - Malaise [Unknown]
  - Sinus disorder [Not Recovered/Not Resolved]
  - Drug dose omission [Not Recovered/Not Resolved]
